FAERS Safety Report 4413310-9 (Version None)
Quarter: 2004Q3

REPORT INFORMATION
  Report Type: 
  Country: None (occurrence: None)
  Receive Date: 20040802
  Receipt Date: 20040730
  Transmission Date: 20050211
  Serious: Yes (Hospitalization)
  Sender: FDA-Public Use
  Company Number: PHBS2004GR10034

PATIENT
  Age: 13 Month
  Sex: Male

DRUGS (1)
  1. ELIDEL [Suspect]
     Route: 061
     Dates: end: 20040501

REACTIONS (4)
  - CONVULSION [None]
  - GASTROENTERITIS [None]
  - MUSCLE SPASMS [None]
  - VOMITING [None]
